FAERS Safety Report 7180475-8 (Version None)
Quarter: 2010Q4

REPORT INFORMATION
  Report Type: 
  Country: None (occurrence: None)
  Receive Date: 20101123
  Receipt Date: 20100812
  Transmission Date: 20110411
  Serious: No
  Sender: FDA-Public Use
  Company Number: 017130

PATIENT
  Sex: Female
  Weight: 77.1 kg

DRUGS (15)
  1. CIMZIA [Suspect]
     Indication: CROHN'S DISEASE
     Dosage: (400 MG 1X/4 WEEKS SUBCUTANEOUS)
     Route: 058
     Dates: start: 20100301
  2. ENTOCORT EC [Concomitant]
  3. NORCO [Concomitant]
  4. ZOLOFT [Concomitant]
  5. XANAX [Concomitant]
  6. NORVASC /00927401/ [Concomitant]
  7. ZANAFLEX [Concomitant]
  8. COUMADIN [Concomitant]
  9. PLAQUENIL [Concomitant]
  10. POTASSIUM [Concomitant]
  11. LOMOTIL /00034001/ [Concomitant]
  12. PHENERGAN HCL [Concomitant]
  13. AMBIEN [Concomitant]
  14. CLOBETASOL PROPIONATE [Concomitant]
  15. NYSTATIN [Concomitant]

REACTIONS (1)
  - DIARRHOEA [None]
